FAERS Safety Report 22168726 (Version 1)
Quarter: 2023Q2

REPORT INFORMATION
  Report Type: Spontaneous
  Country: US (occurrence: US)
  Receive Date: 20230403
  Receipt Date: 20230403
  Transmission Date: 20230722
  Serious: Yes (Hospitalization, Disabling)
  Sender: FDA-Public Use
  Company Number: US-TEVA-2023-US-2871805

PATIENT
  Sex: Female

DRUGS (1)
  1. PROAIR HFA [Suspect]
     Active Substance: ALBUTEROL SULFATE
     Indication: Dyspnoea
     Dosage: 90 MCG/DOSE
     Route: 065
     Dates: start: 202205, end: 20221222

REACTIONS (15)
  - Cardiac disorder [Unknown]
  - Heart rate increased [Recovered/Resolved]
  - Hypertension [Recovered/Resolved]
  - Pruritus [Unknown]
  - Rash erythematous [Unknown]
  - Dizziness [Unknown]
  - Dyspnoea [Unknown]
  - Hypersensitivity [Unknown]
  - Tremor [Unknown]
  - Rhinorrhoea [Unknown]
  - Palpitations [Unknown]
  - Tachycardia [Unknown]
  - Drug ineffective [Unknown]
  - Product prescribing issue [Unknown]
  - Product use in unapproved indication [Unknown]

NARRATIVE: CASE EVENT DATE: 20220101
